FAERS Safety Report 5217573-1 (Version None)
Quarter: 2007Q1

REPORT INFORMATION
  Report Type: 
  Country: None (occurrence: None)
  Receive Date: 20070124
  Receipt Date: 20060330
  Transmission Date: 20070707
  Serious: No
  Sender: FDA-Public Use
  Company Number: US-GLAXOSMITHKLINE-A0600652A

PATIENT
  Sex: Female

DRUGS (3)
  1. PAXIL CR [Suspect]
     Indication: PANIC REACTION
     Route: 048
  2. PAXIL [Suspect]
     Indication: PANIC REACTION
     Dosage: 40MG PER DAY
     Route: 048
  3. PAROXETINE HYDROCHLORIDE [Suspect]
     Indication: PANIC REACTION
     Route: 048

REACTIONS (6)
  - CRYING [None]
  - DRUG INEFFECTIVE [None]
  - FEAR OF DEATH [None]
  - HYPERHIDROSIS [None]
  - ILL-DEFINED DISORDER [None]
  - TINNITUS [None]
